FAERS Safety Report 13515363 (Version 1)
Quarter: 2017Q2

REPORT INFORMATION
  Report Type: Spontaneous
  Country: US (occurrence: US)
  Receive Date: 20170504
  Receipt Date: 20170504
  Transmission Date: 20170830
  Serious: No
  Sender: FDA-Public Use
  Company Number: US-009507513-1704USA012016

PATIENT
  Age: 24 Year
  Sex: Female

DRUGS (1)
  1. NEXPLANON [Suspect]
     Active Substance: ETONOGESTREL
     Dosage: 1 ROD; FREQUENCY: ^ONE INSERTION^
     Route: 059
     Dates: start: 20170403

REACTIONS (5)
  - Implant site haemorrhage [Unknown]
  - Implant site pain [Unknown]
  - Implant site erythema [Unknown]
  - Medical device discomfort [Unknown]
  - Middle insomnia [Unknown]

NARRATIVE: CASE EVENT DATE: 201704
